FAERS Safety Report 7732762-X (Version None)
Quarter: 2011Q3

REPORT INFORMATION
  Report Type: 
  Country: None (occurrence: None)
  Receive Date: 20110825
  Receipt Date: 20110816
  Transmission Date: 20111222
  Serious: Yes (Other)
  Sender: FDA-Public Use
  Company Number: AECAN201100196

PATIENT
  Age: 73 Year
  Sex: Female
  Weight: 80 kg

DRUGS (7)
  1. GAMUNEX [Suspect]
     Indication: THROMBOCYTOPENIA
     Dosage: 180 GM;TOTAL;IV
     Route: 042
     Dates: start: 20110414, end: 20110419
  2. CLARITHROMYCIN [Concomitant]
  3. PREDNISONE [Concomitant]
  4. IGIVNEX [Suspect]
     Indication: THROMBOCYTOPENIA
     Dosage: 90 GM;TOTAL;IV
     Route: 042
     Dates: start: 20110417, end: 20110420
  5. CEFTRIAXONE [Concomitant]
  6. GAMUNEX [Suspect]
  7. IGIVNEX [Suspect]

REACTIONS (2)
  - HAEMOLYSIS [None]
  - ANAEMIA [None]
